FAERS Safety Report 9337334 (Version 2)
Quarter: 2013Q3

REPORT INFORMATION
  Report Type: Spontaneous
  Country: BR (occurrence: BR)
  Receive Date: 20130607
  Receipt Date: 20130719
  Transmission Date: 20140515
  Serious: Yes (Other)
  Sender: FDA-Public Use
  Company Number: BR-GLAXOSMITHKLINE-A1025585A

PATIENT
  Sex: Female
  Weight: 70 kg

DRUGS (5)
  1. RYTMONORM [Suspect]
     Indication: ARRHYTHMIA
     Dosage: 300MG TWICE PER DAY
     Route: 048
     Dates: start: 2005
  2. ALDOMET [Suspect]
     Indication: HYPERTENSION
     Dosage: 1TAB TWICE PER DAY
     Route: 048
     Dates: start: 2004
  3. AMIODARONE [Concomitant]
     Indication: ARRHYTHMIA
     Dosage: 50MG TWICE PER DAY
     Route: 048
     Dates: start: 2007
  4. ATACAND [Concomitant]
     Indication: HYPERTENSION
     Dosage: 16MG TWICE PER DAY
     Route: 048
     Dates: start: 2004
  5. MAREVAN [Concomitant]
     Indication: COAGULOPATHY
     Dosage: 1.25MG PER DAY
     Route: 048
     Dates: start: 2007

REACTIONS (5)
  - Thyroid neoplasm [Unknown]
  - Nasopharyngitis [Unknown]
  - Rhinitis [Unknown]
  - Weight increased [Recovered/Resolved]
  - Weight decreased [Unknown]
